FAERS Safety Report 6822295-7 (Version None)
Quarter: 2010Q3

REPORT INFORMATION
  Report Type: 
  Country: None (occurrence: None)
  Receive Date: 20100707
  Receipt Date: 20100707
  Transmission Date: 20110219
  Serious: No
  Sender: FDA-Public Use
  Company Number: None

PATIENT
  Age: 55 Year
  Sex: Female
  Weight: 88.4514 kg

DRUGS (1)
  1. CRESTOR [Suspect]
     Indication: LOW DENSITY LIPOPROTEIN
     Dosage: 1 TABLET AT BEDTIME PO
     Route: 048
     Dates: start: 20100404, end: 20100411

REACTIONS (3)
  - ARTHRALGIA [None]
  - ECONOMIC PROBLEM [None]
  - MYALGIA [None]
